FAERS Safety Report 4348667-0 (Version None)
Quarter: 2004Q2

REPORT INFORMATION
  Report Type: 
  Country: None (occurrence: None)
  Receive Date: 20040423
  Receipt Date: 20040415
  Transmission Date: 20050107
  Serious: Yes (Death)
  Sender: FDA-Public Use
  Company Number: BE-JNJFOC-20040402700

PATIENT
  Age: 2 Month
  Sex: Female

DRUGS (3)
  1. CISAPRIDE (CISAPRIDE) SUSPENSION [Suspect]
     Indication: GASTROOESOPHAGEAL REFLUX DISEASE
     Dosage: 0.5 MG, 4 IN 1 DAY : 12 MG, 2 IN 1 DAY, ORAL
     Route: 048
     Dates: start: 20030725
  2. CISAPRIDE (CISAPRIDE) SUSPENSION [Suspect]
     Indication: GASTROOESOPHAGEAL REFLUX DISEASE
     Dosage: 0.5 MG, 4 IN 1 DAY : 12 MG, 2 IN 1 DAY, ORAL
     Route: 048
     Dates: start: 20030917
  3. LUMINAL (PHENOBARBITAL) [Concomitant]

REACTIONS (3)
  - DRUG EFFECT DECREASED [None]
  - MEDICAL DEVICE COMPLICATION [None]
  - PERITONITIS [None]
